FAERS Safety Report 18173209 (Version 1)
Quarter: 2020Q3

REPORT INFORMATION
  Report Type: Spontaneous
  Country: JP (occurrence: JP)
  Receive Date: 20200820
  Receipt Date: 20200820
  Transmission Date: 20201103
  Serious: Yes (Hospitalization)
  Sender: FDA-Public Use
  Company Number: JP-ASTRAZENECA-2020SF04405

PATIENT
  Age: 80 Year
  Sex: Male
  Weight: 56 kg

DRUGS (1)
  1. IMFINZI [Suspect]
     Active Substance: DURVALUMAB
     Indication: NON-SMALL CELL LUNG CANCER
     Route: 041

REACTIONS (4)
  - Pneumonia [Recovering/Resolving]
  - Radiation pneumonitis [Recovering/Resolving]
  - Infectious pleural effusion [Recovering/Resolving]
  - Eastern Cooperative Oncology Group performance status worsened [Unknown]
